FAERS Safety Report 21113385 (Version 1)
Quarter: 2022Q3

REPORT INFORMATION
  Report Type: Spontaneous
  Country: US (occurrence: None)
  Receive Date: 20220721
  Receipt Date: 20220721
  Transmission Date: 20221027
  Serious: No
  Sender: FDA-Public Use
  Company Number: None

PATIENT
  Age: 75 Year
  Sex: Female
  Weight: 53.1 kg

DRUGS (11)
  1. PROLIA [Suspect]
     Active Substance: DENOSUMAB
     Indication: Osteoporosis
     Dosage: OTHER FREQUENCY : EVERY 6 MONTHS;?
     Route: 058
  2. ATENOLOL [Concomitant]
  3. DEXILANT [Concomitant]
     Active Substance: DEXLANSOPRAZOLE
  4. RESTASIS [Concomitant]
     Active Substance: CYCLOSPORINE
  5. SOMA [Concomitant]
     Active Substance: CARISOPRODOL
  6. ATIVAN [Concomitant]
     Active Substance: LORAZEPAM
  7. FLUTICASONE [Concomitant]
     Active Substance: FLUTICASONE
  8. NEURONTIN [Concomitant]
     Active Substance: GABAPENTIN
  9. SYSTANE [Concomitant]
  10. VITAMIN D3 [Concomitant]
     Active Substance: CHOLECALCIFEROL
  11. MAGNESIUM OXIDE [Concomitant]

REACTIONS (8)
  - Dermatitis [None]
  - Tooth loss [None]
  - Dental caries [None]
  - Gingival swelling [None]
  - Dental caries [None]
  - Muscle spasms [None]
  - Syncope [None]
  - Blood cholesterol increased [None]

NARRATIVE: CASE EVENT DATE: 20180516
